FAERS Safety Report 7941150-2 (Version None)
Quarter: 2011Q4

REPORT INFORMATION
  Report Type: 
  Country: None (occurrence: None)
  Receive Date: 20111128
  Receipt Date: 20110926
  Transmission Date: 20120403
  Serious: Yes (Death, Hospitalization, Other)
  Sender: FDA-Public Use
  Company Number: ES-ROXANE LABORATORIES, INC.-2011-DE-05364GD

PATIENT
  Age: 70 Year
  Sex: Female

DRUGS (1)
  1. PREDNISONE TAB [Suspect]
     Dosage: 10 MG

REACTIONS (6)
  - CRYPTOCOCCOSIS [None]
  - THROMBOPHLEBITIS SUPERFICIAL [None]
  - DISSEMINATED CRYPTOCOCCOSIS [None]
  - CELLULITIS GANGRENOUS [None]
  - PLEURAL EFFUSION [None]
  - RESPIRATORY TRACT INFECTION FUNGAL [None]
